FAERS Safety Report 5346594-3 (Version None)
Quarter: 2007Q2

REPORT INFORMATION
  Report Type: 
  Country: None (occurrence: None)
  Receive Date: 20070605
  Receipt Date: 20070427
  Transmission Date: 20071010
  Serious: No
  Sender: FDA-Public Use
  Company Number: GB-PFIZER INC-2007031670

PATIENT
  Sex: Male

DRUGS (1)
  1. CHAMPIX [Suspect]

REACTIONS (1)
  - NO ADVERSE EFFECT [None]
